FAERS Safety Report 4922941-9 (Version None)
Quarter: 2006Q1

REPORT INFORMATION
  Report Type: 
  Country: None (occurrence: None)
  Receive Date: 20060224
  Receipt Date: 20051019
  Transmission Date: 20060701
  Serious: Yes (Hospitalization)
  Sender: FDA-Public Use
  Company Number: US-MERCK-0510USA08219

PATIENT
  Age: 74 Year
  Sex: Male
  Weight: 75 kg

DRUGS (13)
  1. VIOXX [Suspect]
     Indication: OSTEOARTHRITIS
     Route: 048
     Dates: start: 20010102, end: 20040930
  2. ASPIRIN [Concomitant]
     Route: 065
  3. SINGULAIR [Concomitant]
     Route: 065
  4. XALATAN [Concomitant]
     Route: 065
  5. FLOVENT [Concomitant]
     Route: 065
  6. COMBIVENT [Concomitant]
     Route: 065
  7. SEREVENT [Concomitant]
     Route: 065
  8. LIPITOR [Concomitant]
     Route: 065
  9. CLARITIN-D [Concomitant]
     Route: 065
  10. PREDNISONE [Concomitant]
     Route: 065
  11. METHYLPREDNISOLONE [Concomitant]
     Route: 065
  12. LEVAQUIN [Concomitant]
     Route: 065
  13. ADVIL [Concomitant]
     Route: 065

REACTIONS (14)
  - ANAEMIA [None]
  - ANGIOPATHY [None]
  - DEEP VEIN THROMBOSIS [None]
  - DELIRIUM [None]
  - DYSLIPIDAEMIA [None]
  - GROIN PAIN [None]
  - HAEMATOMA [None]
  - HAEMORRHAGE [None]
  - HYPERCHOLESTEROLAEMIA [None]
  - HYPERTENSION [None]
  - PAIN IN EXTREMITY [None]
  - POLYMYALGIA RHEUMATICA [None]
  - PULMONARY EMBOLISM [None]
  - SYNOVIAL CYST [None]
